FAERS Safety Report 6884661-3 (Version None)
Quarter: 2010Q3

REPORT INFORMATION
  Report Type: 
  Country: None (occurrence: None)
  Receive Date: 20100729
  Receipt Date: 20070721
  Transmission Date: 20110219
  Serious: No
  Sender: FDA-Public Use
  Company Number: US-PFIZER INC-2007060394

PATIENT
  Age: 72 Year
  Sex: Female
  Weight: 50.9 kg

DRUGS (4)
  1. CELEBREX [Suspect]
     Indication: SYNOVIAL CYST
     Dates: start: 20070719
  2. NORVASC [Concomitant]
     Indication: HYPERTENSION
  3. PRAVACHOL [Concomitant]
  4. FOSAMAX [Concomitant]

REACTIONS (2)
  - COUGH [None]
  - DRUG INEFFECTIVE [None]
